FAERS Safety Report 5136417-X (Version None)
Quarter: 2006Q4

REPORT INFORMATION
  Report Type: 
  Country: None (occurrence: None)
  Receive Date: 20061027
  Receipt Date: 20061019
  Transmission Date: 20070319
  Serious: Yes (Other)
  Sender: FDA-Public Use
  Company Number: FR-BRISTOL-MYERS SQUIBB COMPANY-13554860

PATIENT
  Age: 74 Year
  Sex: Female

DRUGS (1)
  1. COAPROVEL TABS 300MG/12.5MG [Suspect]
     Route: 048
     Dates: start: 20060505

REACTIONS (2)
  - FATIGUE [None]
  - THROMBOCYTHAEMIA [None]
